FAERS Safety Report 5508548-3 (Version None)
Quarter: 2007Q4

REPORT INFORMATION
  Report Type: 
  Country: None (occurrence: None)
  Receive Date: 20071031
  Receipt Date: 20070706
  Transmission Date: 20080405
  Serious: No
  Sender: FDA-Public Use
  Company Number: 2007PV033120

PATIENT
  Age: 60 Year
  Sex: Female

DRUGS (4)
  1. SYMLIN [Suspect]
     Indication: TYPE 2 DIABETES MELLITUS
     Dosage: 90 MCG;BID;SC ; 60 MCG;BID;SC ; 30 MCG;BID;SC
     Route: 058
     Dates: start: 20070501, end: 20070101
  2. SYMLIN [Suspect]
     Indication: TYPE 2 DIABETES MELLITUS
     Dosage: 90 MCG;BID;SC ; 60 MCG;BID;SC ; 30 MCG;BID;SC
     Route: 058
     Dates: start: 20070101, end: 20070601
  3. SYMLIN [Suspect]
     Indication: TYPE 2 DIABETES MELLITUS
     Dosage: 90 MCG;BID;SC ; 60 MCG;BID;SC ; 30 MCG;BID;SC
     Route: 058
     Dates: start: 20070601
  4. NOVOLIN 50/50 [Concomitant]

REACTIONS (2)
  - ABDOMINAL PAIN UPPER [None]
  - NAUSEA [None]
